FAERS Safety Report 25573543 (Version 1)
Quarter: 2025Q3

REPORT INFORMATION
  Report Type: Report from Study
  Country: CA (occurrence: CA)
  Receive Date: 20250717
  Receipt Date: 20250717
  Transmission Date: 20251021
  Serious: Yes (Other)
  Sender: TAKEDA
  Company Number: CA-TAKEDA-2025TUS048300

PATIENT
  Sex: Female

DRUGS (4)
  1. VEDOLIZUMAB [Suspect]
     Active Substance: VEDOLIZUMAB
     Indication: Colitis ulcerative
  2. CORTIFOAM [Concomitant]
     Active Substance: HYDROCORTISONE ACETATE
  3. ASPIRIN [Concomitant]
     Active Substance: ASPIRIN
  4. ENTOCORT [Concomitant]
     Active Substance: BUDESONIDE

REACTIONS (3)
  - Abortion spontaneous [Unknown]
  - Pregnancy [Recovered/Resolved]
  - Product dose omission issue [Unknown]
